FAERS Safety Report 9707664 (Version 2)
Quarter: 2013Q4

REPORT INFORMATION
  Report Type: Spontaneous
  Country: US (occurrence: US)
  Receive Date: 20131125
  Receipt Date: 20131212
  Transmission Date: 20140711
  Serious: No
  Sender: FDA-Public Use
  Company Number: US-TEVA-378076USA

PATIENT
  Age: 28 Year
  Sex: Female

DRUGS (4)
  1. PARAGARD 380A [Suspect]
     Indication: CONTRACEPTION
     Route: 015
     Dates: start: 20121203, end: 20121205
  2. DEXILANT [Concomitant]
  3. ADDERALL XR [Concomitant]
  4. AMBIEN [Concomitant]

REACTIONS (4)
  - Dizziness [Recovered/Resolved]
  - Pelvic pain [Recovered/Resolved]
  - Hyperhidrosis [Recovered/Resolved]
  - Vomiting [Recovered/Resolved]
